FAERS Safety Report 20524512 (Version 1)
Quarter: 2022Q1

REPORT INFORMATION
  Report Type: Spontaneous
  Country: MA (occurrence: MA)
  Receive Date: 20220228
  Receipt Date: 20220228
  Transmission Date: 20220423
  Serious: Yes (Hospitalization, Other)
  Sender: FDA-Public Use
  Company Number: MA-WOCKHARDT BIO AG-2022WBA000025

PATIENT
  Age: 68 Year
  Sex: Female

DRUGS (1)
  1. LITHIUM HYDROXIDE [Suspect]
     Active Substance: LITHIUM HYDROXIDE
     Indication: Bipolar disorder
     Dosage: 500 MILLIGRAM
     Route: 065

REACTIONS (4)
  - Hyperparathyroidism [Recovered/Resolved]
  - Hypercalcaemia [Recovered/Resolved]
  - Neuropsychiatric symptoms [Not Recovered/Not Resolved]
  - Parathyroid tumour benign [Unknown]
